FAERS Safety Report 15375076 (Version 1)
Quarter: 2018Q3

REPORT INFORMATION
  Report Type: Report from Study
  Country: US (occurrence: US)
  Receive Date: 20180912
  Receipt Date: 20180912
  Transmission Date: 20181010
  Serious: Yes (Other)
  Sender: FDA-Public Use
  Company Number: US-ALEXION PHARMACEUTICALS INC.-A201811795

PATIENT
  Sex: Female

DRUGS (2)
  1. SOLIRIS [Suspect]
     Active Substance: ECULIZUMAB
     Dosage: UNK, Q2W
     Route: 065
     Dates: start: 20180830
  2. SOLIRIS [Suspect]
     Active Substance: ECULIZUMAB
     Indication: MYASTHENIA GRAVIS
     Dosage: UNK
     Route: 065
     Dates: start: 20180802

REACTIONS (7)
  - Dry mouth [Recovered/Resolved]
  - Oral pain [Recovered/Resolved]
  - Ocular hyperaemia [Recovered/Resolved]
  - Nausea [Recovered/Resolved]
  - Dry eye [Recovered/Resolved]
  - Rheumatoid arthritis [Recovered/Resolved]
  - Back pain [Recovered/Resolved]
